FAERS Safety Report 11080668 (Version 2)
Quarter: 2015Q2

REPORT INFORMATION
  Report Type: Spontaneous
  Country: AR (occurrence: AR)
  Receive Date: 20150501
  Receipt Date: 20150615
  Transmission Date: 20150821
  Serious: Yes (Hospitalization, Other)
  Sender: FDA-Public Use
  Company Number: AR-AMGEN-ARGSP2015041909

PATIENT
  Age: 70 Year
  Sex: Female

DRUGS (4)
  1. METHYLPREDNISOLONA                /00049601/ [Concomitant]
     Dosage: UNK
  2. ENBREL [Suspect]
     Active Substance: ETANERCEPT
     Indication: RHEUMATOID ARTHRITIS
     Dosage: 50 MG, WEEKLY
     Route: 065
     Dates: start: 20080708
  3. ATENOLOL. [Concomitant]
     Active Substance: ATENOLOL
     Dosage: UNK
  4. URZAC                              /00465701/ [Concomitant]
     Dosage: UNK

REACTIONS (5)
  - Joint range of motion decreased [Recovering/Resolving]
  - Rheumatoid arthritis [Recovering/Resolving]
  - Incorrect dose administered [Recovered/Resolved]
  - Infection [Recovered/Resolved]
  - Limb discomfort [Recovering/Resolving]

NARRATIVE: CASE EVENT DATE: 201412
